FAERS Safety Report 18531497 (Version 2)
Quarter: 2020Q4

REPORT INFORMATION
  Report Type: Report from Study
  Country: FR (occurrence: FR)
  Receive Date: 20201122
  Receipt Date: 20201202
  Transmission Date: 20210114
  Serious: Yes (Death, Other)
  Sender: FDA-Public Use
  Company Number: FR-BIOVITRUM-2020FR6362

PATIENT
  Age: 90 Year
  Sex: Female

DRUGS (13)
  1. INIPOMP [Concomitant]
     Active Substance: PANTOPRAZOLE SODIUM
  2. SERESTA [Concomitant]
     Active Substance: OXAZEPAM
  3. SALBUTAMOL [Concomitant]
     Active Substance: ALBUTEROL
  4. HEPARIN [Concomitant]
     Active Substance: HEPARIN SODIUM
  5. METRONIDAZOLE. [Concomitant]
     Active Substance: METRONIDAZOLE
  6. REVLAR [Concomitant]
  7. INNOHEP [Concomitant]
     Active Substance: TINZAPARIN SODIUM
  8. MORPHINE [Concomitant]
     Active Substance: MORPHINE
  9. PIPERACILLINE [Concomitant]
     Active Substance: PIPERACILLIN SODIUM
  10. KINERET [Suspect]
     Active Substance: ANAKINRA
     Indication: CORONAVIRUS INFECTION
     Dosage: 100 MG/0.67 ML
     Route: 042
     Dates: start: 20200415, end: 20200420
  11. BISOPROLOL [Concomitant]
     Active Substance: BISOPROLOL
  12. SEEBRI BREEZHALER [Concomitant]
     Active Substance: GLYCOPYRROLATE
  13. SIMVASTATINE [Concomitant]
     Active Substance: SIMVASTATIN

REACTIONS (2)
  - Multiple organ dysfunction syndrome [Fatal]
  - Sepsis [Fatal]

NARRATIVE: CASE EVENT DATE: 20200421
